FAERS Safety Report 10744721 (Version 1)
Quarter: 2015Q1

REPORT INFORMATION
  Report Type: Spontaneous
  Country: US (occurrence: None)
  Receive Date: 20150126
  Receipt Date: 20150126
  Transmission Date: 20150721
  Serious: Yes (Other)
  Sender: FDA-Public Use
  Company Number: None

PATIENT
  Age: 61 Year
  Sex: Female

DRUGS (5)
  1. METHOCARBAMOL. [Concomitant]
     Active Substance: METHOCARBAMOL
  2. RITALIN [Concomitant]
     Active Substance: METHYLPHENIDATE HYDROCHLORIDE
  3. AMPYRA [Suspect]
     Active Substance: DALFAMPRIDINE
     Indication: MULTIPLE SCLEROSIS
     Route: 048
     Dates: start: 201311, end: 201409
  4. PREDNISONE. [Concomitant]
     Active Substance: PREDNISONE
  5. COPAXONE [Concomitant]
     Active Substance: GLATIRAMER ACETATE

REACTIONS (1)
  - Urinary tract infection [None]

NARRATIVE: CASE EVENT DATE: 20140412
